FAERS Safety Report 5068644-4 (Version None)
Quarter: 2006Q3

REPORT INFORMATION
  Report Type: 
  Country: None (occurrence: None)
  Receive Date: 20060802
  Receipt Date: 20060123
  Transmission Date: 20061208
  Serious: No
  Sender: FDA-Public Use
  Company Number: US-BRISTOL-MYERS SQUIBB COMPANY-13257209

PATIENT
  Sex: Male

DRUGS (1)
  1. COUMADIN [Suspect]
     Indication: CEREBROVASCULAR ACCIDENT
     Dosage: STARTED END OF NOV-2005, DOSE WAS INCREASED TO 1 AND 1/2 TABS ONCE DAILY D/T INR VALUE
     Dates: start: 20051101

REACTIONS (1)
  - INTERNATIONAL NORMALISED RATIO DECREASED [None]
